FAERS Safety Report 17498315 (Version 1)
Quarter: 2020Q1

REPORT INFORMATION
  Report Type: Spontaneous
  Country: DK (occurrence: DK)
  Receive Date: 20200304
  Receipt Date: 20200304
  Transmission Date: 20200409
  Serious: Yes (Other)
  Sender: FDA-Public Use
  Company Number: DK-MYLANLABS-2020M1021421

PATIENT
  Age: 73 Year
  Sex: Female

DRUGS (8)
  1. KLOMIPRAMIN MYLAN 10 MG FILMOVERTRUKNE TABLETTER [Suspect]
     Active Substance: CLOMIPRAMINE
     Indication: DEPRESSION
     Dosage: 10 MILLIGRAM, QD
  2. STESOLID [Concomitant]
     Active Substance: DIAZEPAM
     Dosage: 5 MILLIGRAM DAILY (SPLITS THE TABLET IN 4 PARTS AND TAKES IT THROUGHOUT THE DAY)
  3. KLOMIPRAMIN MYLAN 10 MG FILMOVERTRUKNE TABLETTER [Suspect]
     Active Substance: CLOMIPRAMINE
     Indication: ANXIETY
  4. NOZINAN                            /00038601/ [Concomitant]
     Active Substance: LEVOMEPROMAZINE
     Dosage: 5 MILLIGRAM DAILY (SPLITS THE TABLET IN 4 PARTS AND TAKES IT THROUGHOUT THE DAY)
  5. IMODIUM [Concomitant]
     Active Substance: LOPERAMIDE HYDROCHLORIDE
     Indication: DIARRHOEA
     Dosage: AS NEEDED
  6. ANAFRANIL [Concomitant]
     Active Substance: CLOMIPRAMINE HYDROCHLORIDE
     Dosage: 25 MILLIGRAM, QD
     Dates: start: 20200119, end: 20200121
  7. KLOMIPRAMIN MYLAN 10 MG FILMOVERTRUKNE TABLETTER [Suspect]
     Active Substance: CLOMIPRAMINE
     Indication: NERVOUSNESS
  8. HALCION [Concomitant]
     Active Substance: TRIAZOLAM
     Dosage: 0.25 MG X 3/4 TABLET AT NIGHTTIME, AS NEEDED

REACTIONS (14)
  - Nervousness [Not Recovered/Not Resolved]
  - Gastric cancer [Not Recovered/Not Resolved]
  - Depression [Not Recovered/Not Resolved]
  - Headache [Not Recovered/Not Resolved]
  - Product availability issue [Unknown]
  - Flank pain [Not Recovered/Not Resolved]
  - Tremor [Not Recovered/Not Resolved]
  - Insomnia [Not Recovered/Not Resolved]
  - Anxiety [Not Recovered/Not Resolved]
  - Abdominal pain upper [Not Recovered/Not Resolved]
  - Vomiting [Not Recovered/Not Resolved]
  - Diarrhoea [Recovering/Resolving]
  - Product dose omission [Not Recovered/Not Resolved]
  - Nausea [Not Recovered/Not Resolved]
